FAERS Safety Report 9770397 (Version 2)
Quarter: 2013Q4

REPORT INFORMATION
  Report Type: Spontaneous
  Country: TR (occurrence: TR)
  Receive Date: 20131218
  Receipt Date: 20131227
  Transmission Date: 20140711
  Serious: Yes (Other)
  Sender: FDA-Public Use
  Company Number: TR-ABBVIE-13P-161-1181123-00

PATIENT
  Age: 20 Year
  Sex: Male

DRUGS (1)
  1. VALPROIC ACID [Suspect]
     Indication: EPILEPSY
     Route: 065

REACTIONS (4)
  - Gingival hyperplasia [Unknown]
  - Lymphadenopathy [Unknown]
  - Neck pain [Unknown]
  - Local swelling [Unknown]
